FAERS Safety Report 5260214-8 (Version None)
Quarter: 2007Q1

REPORT INFORMATION
  Report Type: 
  Country: None (occurrence: None)
  Receive Date: 20070309
  Receipt Date: 20060508
  Transmission Date: 20070707
  Serious: No
  Sender: FDA-Public Use
  Company Number: US-GLAXOSMITHKLINE-A0604477A

PATIENT
  Age: 50 Year
  Sex: Female

DRUGS (1)
  1. NICORETTE [Suspect]

REACTIONS (5)
  - HICCUPS [None]
  - INTENTIONAL DRUG MISUSE [None]
  - PERSONALITY CHANGE [None]
  - SEXUAL RELATIONSHIP CHANGE [None]
  - TENSION [None]
